FAERS Safety Report 19405489 (Version 1)
Quarter: 2021Q2

REPORT INFORMATION
  Report Type: Spontaneous
  Country: IT (occurrence: IT)
  Receive Date: 20210611
  Receipt Date: 20210611
  Transmission Date: 20210717
  Serious: Yes (Death, Hospitalization, Other)
  Sender: FDA-Public Use
  Company Number: IT-SA-2021SA167634

PATIENT
  Age: 64 Year
  Sex: Male

DRUGS (10)
  1. LETERMOVIR [Concomitant]
     Active Substance: LETERMOVIR
     Indication: ANTIVIRAL PROPHYLAXIS
     Dosage: UNK
  2. ANTI?THYMOCYTE GLOBULIN (RABBIT) NOS [Suspect]
     Active Substance: LAPINE T-LYMPHOCYTE IMMUNE GLOBULIN
     Indication: BONE MARROW CONDITIONING REGIMEN
     Dosage: UNK
  3. CYCLOSPORINE. [Interacting]
     Active Substance: CYCLOSPORINE
     Indication: IMMUNOSUPPRESSANT DRUG THERAPY
     Dosage: UNK
     Route: 065
  4. ATOVAQUONE. [Concomitant]
     Active Substance: ATOVAQUONE
     Indication: PARASITIC INFECTION PROPHYLAXIS
     Dosage: UNK
  5. TOCILIZUMAB. [Suspect]
     Active Substance: TOCILIZUMAB
     Indication: COVID-19 PNEUMONIA
     Dosage: 6 MG/KG, 1X
     Route: 065
  6. METHYLPREDNISOLONE. [Suspect]
     Active Substance: METHYLPREDNISOLONE
     Indication: COVID-19 PNEUMONIA
     Dosage: 1 MG/KG
  7. MYCOPHENOLATE MOFETIL. [Suspect]
     Active Substance: MYCOPHENOLATE MOFETIL
     Indication: IMMUNOSUPPRESSANT DRUG THERAPY
     Dosage: UNK
     Route: 065
  8. ISAVUCONAZOLE [Suspect]
     Active Substance: ISAVUCONAZOLE
     Indication: ANTIFUNGAL PROPHYLAXIS
     Dosage: UNK
     Route: 065
  9. METHYLPREDNISOLONE. [Suspect]
     Active Substance: METHYLPREDNISOLONE
     Dosage: 0.5 MG/KG
  10. ACICLOVIR [Concomitant]
     Active Substance: ACYCLOVIR
     Indication: ANTIVIRAL PROPHYLAXIS
     Dosage: UNK

REACTIONS (18)
  - Altered state of consciousness [Fatal]
  - Respiratory failure [Fatal]
  - Pneumothorax [Fatal]
  - Lymphadenopathy mediastinal [Fatal]
  - Pericardial effusion [Fatal]
  - Pulmonary pneumatocele [Fatal]
  - Pleural effusion [Fatal]
  - Lung infiltration [Fatal]
  - Pneumomediastinum [Fatal]
  - Septic shock [Recovered/Resolved]
  - COVID-19 pneumonia [Fatal]
  - Lower respiratory tract infection viral [Fatal]
  - Pneumonia viral [Fatal]
  - Hepatic failure [Fatal]
  - Pyrexia [Fatal]
  - Lung opacity [Fatal]
  - Aspergillus infection [Fatal]
  - Hyperbilirubinaemia [Fatal]
